FAERS Safety Report 19399837 (Version 2)
Quarter: 2021Q2

REPORT INFORMATION
  Report Type: Spontaneous
  Country: US (occurrence: US)
  Receive Date: 20210610
  Receipt Date: 20210628
  Transmission Date: 20210717
  Serious: No
  Sender: FDA-Public Use
  Company Number: US-PFIZER INC-2021513705

PATIENT
  Age: 62 Year
  Sex: Female

DRUGS (2)
  1. XELJANZ XR [Suspect]
     Active Substance: TOFACITINIB CITRATE
     Indication: PSORIATIC ARTHROPATHY
     Dosage: 11 MG, 1X/DAY
     Route: 048
     Dates: start: 202101
  2. XELJANZ XR [Suspect]
     Active Substance: TOFACITINIB CITRATE
     Indication: OSTEOARTHRITIS

REACTIONS (5)
  - Gastrooesophageal reflux disease [Unknown]
  - Gastric disorder [Unknown]
  - Vomiting [Unknown]
  - Depressed mood [Unknown]
  - Product dose omission issue [Unknown]
